FAERS Safety Report 15622030 (Version 1)
Quarter: 2018Q4

REPORT INFORMATION
  Report Type: Spontaneous
  Country: FR (occurrence: FR)
  Receive Date: 20181115
  Receipt Date: 20181115
  Transmission Date: 20190205
  Serious: Yes (Hospitalization)
  Sender: FDA-Public Use
  Company Number: FR-PFIZER INC-2018462715

PATIENT
  Age: 82 Year
  Sex: Female

DRUGS (2)
  1. PREVISCAN [FLUINDIONE] [Interacting]
     Active Substance: FLUINDIONE
     Indication: CIRCULATING ANTICOAGULANT
     Dosage: 15 MG, 1X/DAY (EVENING)
     Route: 048
     Dates: end: 20171016
  2. TAHOR [Suspect]
     Active Substance: ATORVASTATIN CALCIUM
     Indication: BLOOD CHOLESTEROL
     Dosage: 20 MG, 1X/DAY (AT EVENING)
     Route: 048

REACTIONS (2)
  - Drug interaction [Unknown]
  - Melaena [Recovered/Resolved]

NARRATIVE: CASE EVENT DATE: 20171010
